FAERS Safety Report 12844287 (Version 3)
Quarter: 2018Q4

REPORT INFORMATION
  Report Type: Spontaneous
  Country: US (occurrence: US)
  Receive Date: 20161013
  Receipt Date: 20181010
  Transmission Date: 20190204
  Serious: No
  Sender: FDA-Public Use
  Company Number: US-ROCHE-1786037

PATIENT
  Age: 46 Year
  Sex: Male

DRUGS (8)
  1. ZELBORAF [Suspect]
     Active Substance: VEMURAFENIB
     Indication: SKIN CANCER
     Dosage: TAKE 4 TABLETS BY MOUTH EVERY 12 HOURS?DOSE OF 240MG/KG
     Route: 048
     Dates: start: 20160828
  2. HYDROXYZINE HCL [Concomitant]
     Active Substance: HYDROXYZINE HYDROCHLORIDE
     Route: 048
  3. ZELBORAF [Suspect]
     Active Substance: VEMURAFENIB
     Indication: ADENOCARCINOMA
     Dosage: TAKE 4 TABLETS BY MOUTH EVERY 12 HOURS
     Route: 048
     Dates: start: 20160826
  4. ZELBORAF [Suspect]
     Active Substance: VEMURAFENIB
     Indication: SKIN CANCER
     Dosage: TAKE 4 TABLETS BY MOUTH EVERY 12 HOURS
     Route: 048
     Dates: start: 20160827
  5. ZELBORAF [Suspect]
     Active Substance: VEMURAFENIB
     Route: 048
     Dates: start: 201406
  6. ZELBORAF [Suspect]
     Active Substance: VEMURAFENIB
     Indication: MALIGNANT MELANOMA
     Dosage: TAKE 4 TABLETS BY MOUTH EVERY 12 HOURS
     Route: 048
     Dates: start: 2014
  7. NAPROXEN. [Concomitant]
     Active Substance: NAPROXEN
     Route: 048
  8. NAPROXEN. [Concomitant]
     Active Substance: NAPROXEN
     Indication: PRODUCT USED FOR UNKNOWN INDICATION
     Route: 065

REACTIONS (11)
  - Nausea [Not Recovered/Not Resolved]
  - Rash [Not Recovered/Not Resolved]
  - Pain in extremity [Not Recovered/Not Resolved]
  - Furuncle [Not Recovered/Not Resolved]
  - Scrotal cyst [Unknown]
  - Diarrhoea [Not Recovered/Not Resolved]
  - Infected cyst [Unknown]
  - Arthralgia [Unknown]
  - Bone pain [Unknown]
  - Furuncle [Unknown]
  - Dry skin [Not Recovered/Not Resolved]

NARRATIVE: CASE EVENT DATE: 201412
